FAERS Safety Report 6074005-1 (Version None)
Quarter: 2009Q1

REPORT INFORMATION
  Report Type: 
  Country: None (occurrence: None)
  Receive Date: 20090211
  Receipt Date: 20090129
  Transmission Date: 20090719
  Serious: Yes (Hospitalization)
  Sender: FDA-Public Use
  Company Number: MX-ASTRAZENECA-2009UW02855

PATIENT
  Age: 42 Year
  Sex: Male
  Weight: 85 kg

DRUGS (1)
  1. QUETIAPINE XR [Suspect]
     Dosage: 300 MG AND 200 MG TABLETS
     Route: 048
     Dates: start: 20080731, end: 20090127

REACTIONS (1)
  - CONDITION AGGRAVATED [None]
